FAERS Safety Report 23545658 (Version 1)
Quarter: 2024Q1

REPORT INFORMATION
  Report Type: Spontaneous
  Country: US (occurrence: None)
  Receive Date: 20240218
  Receipt Date: 20240218
  Transmission Date: 20240410
  Serious: No
  Sender: FDA-Public Use
  Company Number: None

PATIENT
  Age: 61 Year
  Sex: Female
  Weight: 94.5 kg

DRUGS (5)
  1. SEMAGLUTIDE [Suspect]
     Active Substance: SEMAGLUTIDE
     Indication: Weight decreased
     Dosage: OTHER FREQUENCY : ONCE WEEKLY;?
     Route: 030
     Dates: start: 20240130, end: 20240207
  2. BUPROPION [Concomitant]
     Active Substance: BUPROPION
  3. Escapalitram [Concomitant]
  4. Busperone [Concomitant]
  5. ROSUVASTATIN [Concomitant]
     Active Substance: ROSUVASTATIN

REACTIONS (4)
  - Nausea [None]
  - Dyspepsia [None]
  - Gastrooesophageal reflux disease [None]
  - Drug ineffective [None]

NARRATIVE: CASE EVENT DATE: 20240130
